FAERS Safety Report 7700910-3 (Version None)
Quarter: 2011Q3

REPORT INFORMATION
  Report Type: 
  Country: None (occurrence: None)
  Receive Date: 20110822
  Receipt Date: 20110811
  Transmission Date: 20111222
  Serious: Yes (Other)
  Sender: FDA-Public Use
  Company Number: PHHY2011CA70889

PATIENT
  Sex: Male

DRUGS (2)
  1. ZOMETA [Suspect]
     Indication: PROSTATE CANCER
     Dosage: 3 MG, EVERY 4 WEEKS
     Route: 042
     Dates: start: 20110725
  2. PREDNISONE [Concomitant]
     Dosage: 10 MG, UNK
     Route: 048

REACTIONS (10)
  - PAIN [None]
  - FEELING COLD [None]
  - NEOPLASM MALIGNANT [None]
  - ARTHRALGIA [None]
  - NEOPLASM PROGRESSION [None]
  - FEELING ABNORMAL [None]
  - ACTIVITIES OF DAILY LIVING IMPAIRED [None]
  - FATIGUE [None]
  - LETHARGY [None]
  - MALAISE [None]
